FAERS Safety Report 22238362 (Version 1)
Quarter: 2023Q2

REPORT INFORMATION
  Report Type: Spontaneous
  Country: US (occurrence: US)
  Receive Date: 20230421
  Receipt Date: 20230421
  Transmission Date: 20230722
  Serious: Yes (Other)
  Sender: FDA-Public Use
  Company Number: None

PATIENT
  Age: 9 Month
  Sex: Male

DRUGS (6)
  1. ALBUTEROL SULFATE [Suspect]
     Active Substance: ALBUTEROL SULFATE
     Indication: Coronary artery aneurysm
     Dosage: UNKNOWN
  2. ASPIRIN [Suspect]
     Active Substance: ASPIRIN
     Indication: Coronary artery aneurysm
     Dosage: UNKNOWN
  3. CLOPIDOGREL [Suspect]
     Active Substance: CLOPIDOGREL BISULFATE
     Indication: Coronary artery aneurysm
     Dosage: UNKNOWN
  4. ENOXAPARIN [Suspect]
     Active Substance: ENOXAPARIN
     Indication: Coronary artery aneurysm
     Dosage: UNKNOWN
  5. RIVAROXABAN [Suspect]
     Active Substance: RIVAROXABAN
     Indication: Aneurysm
     Dosage: UNKNOWN
  6. PROPRANOLOL [Concomitant]
     Active Substance: PROPRANOLOL HYDROCHLORIDE
     Indication: Product used for unknown indication
     Dosage: UNKNOWN

REACTIONS (1)
  - Drug ineffective [Fatal]
